FAERS Safety Report 4341109-0 (Version None)
Quarter: 2004Q2

REPORT INFORMATION
  Report Type: 
  Country: None (occurrence: None)
  Receive Date: 20040419
  Receipt Date: 20031212
  Transmission Date: 20050107
  Serious: Yes (Other)
  Sender: FDA-Public Use
  Company Number: PHEH2003US11395

PATIENT
  Age: 66 Year
  Sex: Female

DRUGS (4)
  1. LOTREL [Suspect]
     Indication: HYPERTENSION
     Dosage: 5 MG AMLOD/20 MG BENAZ QD
     Route: 048
     Dates: start: 20020401
  2. TOPROL-XL [Concomitant]
     Indication: HYPERTENSION
     Dosage: 50 MG, QD
     Route: 065
     Dates: start: 20030901
  3. LEVOXYL [Concomitant]
     Dosage: 100 UG, QD
     Route: 065
  4. ARIMIDEX [Concomitant]

REACTIONS (10)
  - BREAST CANCER RECURRENT [None]
  - BREAST LUMP REMOVAL [None]
  - COUGH [None]
  - FATIGUE [None]
  - NEUROPATHY [None]
  - NEUROPATHY PERIPHERAL [None]
  - NOCTURIA [None]
  - OEDEMA PERIPHERAL [None]
  - PAIN [None]
  - POLLAKIURIA [None]
